FAERS Safety Report 7290695 (Version 2)
Quarter: 2013Q3

REPORT INFORMATION
  Report Type: Spontaneous
  Country: BR (occurrence: BR)
  Receive Date: 20100223
  Receipt Date: 20130903
  Transmission Date: 20140515
  Serious: Yes (Hospitalization, Disabling, Other)
  Sender: FDA-Public Use
  Company Number: BR-ABBOTT-10P-020-0627228-00

PATIENT
  Sex: Female
  Weight: 70 kg

DRUGS (12)
  1. KALETRA TABLETS [Suspect]
     Indication: HIV TEST POSITIVE
     Dosage: 200/50 IN THE MORNING AND IN THE EVENING
     Route: 048
     Dates: start: 2006
  2. PARACETAMOL [Suspect]
     Indication: PRODUCT USED FOR UNKNOWN INDICATION
  3. FLUOXETINE [Concomitant]
     Indication: DEPRESSION
     Route: 048
     Dates: start: 2009
  4. PROPRANOLOL [Concomitant]
     Indication: HYPERTENSION
     Route: 048
     Dates: start: 2005
  5. PROPRANOLOL [Concomitant]
     Indication: ARRHYTHMIA
  6. DIPYRONE [Concomitant]
     Indication: HEADACHE
     Dosage: 25 DROPS DAILY
     Route: 048
  7. ZIDOVIDINE [Concomitant]
     Indication: HIV INFECTION
     Route: 048
     Dates: start: 2008
  8. OMEPRAZOLE [Concomitant]
     Indication: GASTRIC DISORDER
     Route: 048
     Dates: start: 201305
  9. OMEPRAZOLE [Concomitant]
     Indication: PROPHYLAXIS
  10. AMLODIPINE [Concomitant]
     Indication: HYPERTENSION
     Route: 048
     Dates: start: 2008
  11. CIBRATO [Concomitant]
     Indication: BLOOD TRIGLYCERIDES ABNORMAL
     Dosage: IN THE AFTERNOON
     Route: 048
     Dates: start: 2009
  12. RIVOTRIL [Concomitant]
     Indication: SLEEP DISORDER THERAPY
     Dosage: ORAL DROP 5 DROPS SPORADICALLY
     Route: 048
     Dates: start: 1986

REACTIONS (10)
  - Finger amputation [Unknown]
  - Toe amputation [Unknown]
  - Vasculitis [Unknown]
  - Hand amputation [Unknown]
  - Leg amputation [Unknown]
  - Dyspnoea [Not Recovered/Not Resolved]
  - Fatigue [Not Recovered/Not Resolved]
  - Feeling of despair [Not Recovered/Not Resolved]
  - Dizziness [Not Recovered/Not Resolved]
  - Depression [Unknown]
